FAERS Safety Report 4402030-2 (Version None)
Quarter: 2004Q3

REPORT INFORMATION
  Report Type: 
  Country: None (occurrence: None)
  Receive Date: 20040719
  Receipt Date: 20040719
  Transmission Date: 20050211
  Serious: Yes (Other)
  Sender: FDA-Public Use
  Company Number: None

PATIENT
  Age: 39 Year
  Sex: Male
  Weight: 90.7194 kg

DRUGS (4)
  1. ZOLOFT [Suspect]
     Indication: SOCIAL PHOBIA
     Dosage: 100 MG  1 PER DAY  ORAL
     Route: 048
     Dates: start: 20031101, end: 20040709
  2. LESCHOL [Concomitant]
  3. TRICOR [Concomitant]
  4. LISINOPRIL [Concomitant]

REACTIONS (9)
  - ABNORMAL DREAMS [None]
  - CLUMSINESS [None]
  - DRUG WITHDRAWAL SYNDROME [None]
  - FATIGUE [None]
  - HEADACHE [None]
  - IMPAIRED WORK ABILITY [None]
  - NYSTAGMUS [None]
  - PUPILS UNEQUAL [None]
  - SENSORY DISTURBANCE [None]
